FAERS Safety Report 7557677-1 (Version None)
Quarter: 2011Q2

REPORT INFORMATION
  Report Type: 
  Country: None (occurrence: None)
  Receive Date: 20110620
  Receipt Date: 20110610
  Transmission Date: 20111010
  Serious: Yes (Congenital Anomaly)
  Sender: FDA-Public Use
  Company Number: US-JNJFOC-PRIUSA1999003248

PATIENT
  Sex: Male

DRUGS (6)
  1. PRENATAL VITAMINS [Concomitant]
  2. DEPAKOTE [Concomitant]
  3. LAMICTAL [Concomitant]
  4. PAXIL [Concomitant]
  5. FOLIC ACID [Concomitant]
  6. TOPAMAX [Suspect]
     Indication: PRODUCT USED FOR UNKNOWN INDICATION
     Route: 064

REACTIONS (1)
  - SYNDACTYLY [None]
